FAERS Safety Report 8878747 (Version 2)
Quarter: 2012Q4

REPORT INFORMATION
  Report Type: 
  Country: US (occurrence: US)
  Receive Date: 20121026
  Receipt Date: 20121119
  Transmission Date: 20130627
  Serious: Yes (Death, Hospitalization, Other)
  Sender: FDA-Public Use
  Company Number: US-JNJFOC-20121012387

PATIENT

DRUGS (15)
  1. DOXORUBICIN [Suspect]
     Indication: ACUTE LYMPHOCYTIC LEUKAEMIA
     Route: 042
  2. DOXORUBICIN [Suspect]
     Indication: ACUTE LYMPHOCYTIC LEUKAEMIA
     Route: 065
  3. VINCRISTINE [Suspect]
     Indication: ACUTE LYMPHOCYTIC LEUKAEMIA
     Route: 065
  4. CYCLOPHOSPHAMIDE [Suspect]
     Indication: ACUTE LYMPHOCYTIC LEUKAEMIA
     Route: 065
  5. DEXAMETHASONE [Suspect]
     Indication: ACUTE LYMPHOCYTIC LEUKAEMIA
     Route: 065
  6. METHOTREXATE [Suspect]
     Indication: ACUTE LYMPHOCYTIC LEUKAEMIA
     Route: 065
  7. CYTARABINE [Suspect]
     Indication: ACUTE LYMPHOCYTIC LEUKAEMIA
     Route: 065
  8. METFORMIN [Suspect]
     Indication: DIABETES MELLITUS
     Route: 065
  9. METHYLPREDNISOLONE [Suspect]
     Indication: ACUTE LYMPHOCYTIC LEUKAEMIA
     Route: 065
  10. INSULIN [Suspect]
     Indication: DIABETES MELLITUS
     Route: 065
  11. UNSPECIFIED INGREDIENT [Suspect]
     Indication: DIABETES MELLITUS
     Route: 065
  12. UNKNOWN MEDICATION [Suspect]
     Indication: DIABETES MELLITUS
     Route: 065
  13. UNSPECIFIED INGREDIENT [Suspect]
     Indication: DIABETES MELLITUS
     Route: 058
  14. UNSPECIFIED INGREDIENT [Suspect]
     Indication: DIABETES MELLITUS
     Route: 058
  15. GLUCOCORTICOIDS [Suspect]
     Indication: ACUTE LYMPHOCYTIC LEUKAEMIA
     Route: 065

REACTIONS (4)
  - Acute lymphocytic leukaemia recurrent [Unknown]
  - Hospitalisation [Unknown]
  - Infection [Unknown]
  - Hyperglycaemia [Unknown]
